FAERS Safety Report 9112154 (Version 1)
Quarter: 2013Q1

REPORT INFORMATION
  Report Type: Spontaneous
  Country: US (occurrence: US)
  Receive Date: 20130219
  Receipt Date: 20130219
  Transmission Date: 20140127
  Serious: No
  Sender: FDA-Public Use
  Company Number: US-BRISTOL-MYERS SQUIBB COMPANY-16363384

PATIENT
  Sex: Female

DRUGS (4)
  1. ORENCIA [Suspect]
  2. COZAAR [Concomitant]
  3. LIPITOR [Concomitant]
  4. MULTIVITAMINS [Concomitant]

REACTIONS (1)
  - Pruritus [Recovered/Resolved]
